FAERS Safety Report 12674116 (Version 1)
Quarter: 2016Q3

REPORT INFORMATION
  Report Type: Spontaneous
  Country: DE (occurrence: DE)
  Receive Date: 20160822
  Receipt Date: 20160822
  Transmission Date: 20161109
  Serious: Yes (Hospitalization)
  Sender: FDA-Public Use
  Company Number: DE-UNITED THERAPEUTICS-UNT-2016-012864

PATIENT
  Age: 60 Year
  Sex: Female
  Weight: 63 kg

DRUGS (3)
  1. VOMEX A [Concomitant]
     Active Substance: DIMENHYDRINATE
     Indication: PRODUCT USED FOR UNKNOWN INDICATION
  2. IBUPROFEN. [Concomitant]
     Active Substance: IBUPROFEN
     Indication: PRODUCT USED FOR UNKNOWN INDICATION
  3. REMODULIN [Suspect]
     Active Substance: TREPROSTINIL
     Indication: PRODUCT USED FOR UNKNOWN INDICATION
     Dosage: 0.068 ?G/KG, CONTINUING
     Route: 041

REACTIONS (4)
  - Blood pressure decreased [Unknown]
  - Nausea [Unknown]
  - Device use issue [Unknown]
  - Flushing [Unknown]

NARRATIVE: CASE EVENT DATE: 201608
